FAERS Safety Report 18549280 (Version 1)
Quarter: 2020Q4

REPORT INFORMATION
  Report Type: Other
  Country: US (occurrence: US)
  Receive Date: 20201126
  Receipt Date: 20201126
  Transmission Date: 20210114
  Serious: Yes (Hospitalization, Other)
  Sender: FDA-Public Use
  Company Number: US-ROCHE-2714769

PATIENT
  Sex: Female
  Weight: 90.8 kg

DRUGS (12)
  1. HYDROXYCHLOROQUINE [Concomitant]
     Active Substance: HYDROXYCHLOROQUINE
  2. DULOXETINE. [Concomitant]
     Active Substance: DULOXETINE
     Indication: DEPRESSION
  3. OXYGEN. [Concomitant]
     Active Substance: OXYGEN
  4. XANAX [Concomitant]
     Active Substance: ALPRAZOLAM
  5. SOLU-MEDROL [Concomitant]
     Active Substance: METHYLPREDNISOLONE SODIUM SUCCINATE
  6. OCREVUS [Suspect]
     Active Substance: OCRELIZUMAB
     Indication: RELAPSING-REMITTING MULTIPLE SCLEROSIS
     Dosage: ONGOING:YES
     Route: 065
     Dates: start: 2017
  7. DULOXETINE. [Concomitant]
     Active Substance: DULOXETINE
     Indication: MIGRAINE
     Route: 048
     Dates: start: 2014
  8. OCREVUS [Suspect]
     Active Substance: OCRELIZUMAB
     Dosage: ONGOING:YES
     Route: 065
     Dates: start: 2017
  9. SYNTHROID [Concomitant]
     Active Substance: LEVOTHYROXINE SODIUM
     Indication: HYPOTHYROIDISM
     Route: 048
     Dates: start: 2014
  10. SUMATRIPTAN. [Concomitant]
     Active Substance: SUMATRIPTAN
     Indication: MIGRAINE
     Route: 048
     Dates: start: 2008
  11. TREXIMET [Concomitant]
     Active Substance: NAPROXEN SODIUM\SUMATRIPTAN SUCCINATE
     Indication: MIGRAINE
     Route: 048
  12. BACLOFEN. [Concomitant]
     Active Substance: BACLOFEN
     Indication: MUSCLE SPASMS
     Route: 048

REACTIONS (2)
  - COVID-19 [Recovered/Resolved with Sequelae]
  - Pneumonia [Unknown]

NARRATIVE: CASE EVENT DATE: 2020
